FAERS Safety Report 25798059 (Version 1)
Quarter: 2025Q3

REPORT INFORMATION
  Report Type: Report from Study
  Country: US (occurrence: US)
  Receive Date: 20250912
  Receipt Date: 20250912
  Transmission Date: 20251021
  Serious: Yes (Life-Threatening, Hospitalization, Other)
  Sender: JOHNSON AND JOHNSON
  Company Number: US-JNJFOC-20250426317

PATIENT
  Age: 63 Year
  Sex: Female
  Weight: 56.9 kg

DRUGS (7)
  1. TOLODODEKIN ALFA [Suspect]
     Active Substance: TOLODODEKIN ALFA
     Indication: Plasma cell myeloma
     Dosage: LAST ADMINISTRATION DATE: 22-SEP-2022
     Route: 058
     Dates: start: 20220802, end: 20250312
  2. TOLODODEKIN ALFA [Suspect]
     Active Substance: TOLODODEKIN ALFA
     Route: 058
     Dates: start: 20220929, end: 20230215
  3. TOLODODEKIN ALFA [Suspect]
     Active Substance: TOLODODEKIN ALFA
     Route: 058
     Dates: start: 20230228, end: 20250312
  4. POMALIDOMIDE [Suspect]
     Active Substance: POMALIDOMIDE
     Indication: Plasma cell myeloma
     Route: 048
     Dates: start: 20220802, end: 20250401
  5. DEXAMETHASONE [Suspect]
     Active Substance: DEXAMETHASONE
     Indication: Plasma cell myeloma
     Dosage: LAST ADMINISTRATION DATE: 01-APR-2025
     Route: 048
     Dates: start: 20220802
  6. DEXAMETHASONE [Suspect]
     Active Substance: DEXAMETHASONE
     Route: 048
     Dates: start: 20250312, end: 20250402
  7. ELRANATAMAB [Concomitant]
     Active Substance: ELRANATAMAB
     Indication: Product used for unknown indication

REACTIONS (3)
  - Gastrointestinal haemorrhage [Not Recovered/Not Resolved]
  - Anaemia [Unknown]
  - Peripheral vein thrombosis [Unknown]

NARRATIVE: CASE EVENT DATE: 20250411
